FAERS Safety Report 11996555 (Version 2)
Quarter: 2016Q1

REPORT INFORMATION
  Report Type: Report from Study
  Country: US (occurrence: US)
  Receive Date: 20160203
  Receipt Date: 20160322
  Transmission Date: 20160526
  Serious: Yes (Hospitalization, Other)
  Sender: FDA-Public Use
  Company Number: US-GILEAD-2016-0196087

PATIENT
  Age: 50 Year
  Sex: Female

DRUGS (12)
  1. ADCIRCA [Concomitant]
     Active Substance: TADALAFIL
  2. SENSIPAR [Concomitant]
     Active Substance: CINACALCET HYDROCHLORIDE
  3. LOSARTAN. [Concomitant]
     Active Substance: LOSARTAN
  4. AMBRISENTAN [Suspect]
     Active Substance: AMBRISENTAN
     Indication: PULMONARY ARTERIAL HYPERTENSION
     Dosage: 5 MG, QD
     Route: 065
     Dates: start: 20101019
  5. FAMOTIDINE. [Concomitant]
     Active Substance: FAMOTIDINE
  6. RENVELA [Concomitant]
     Active Substance: SEVELAMER CARBONATE
  7. PHOSLO [Concomitant]
     Active Substance: CALCIUM ACETATE
  8. CLONIDINE. [Concomitant]
     Active Substance: CLONIDINE
  9. LUNESTA [Concomitant]
     Active Substance: ESZOPICLONE
  10. METOPROLOL. [Concomitant]
     Active Substance: METOPROLOL
  11. VERAPAMIL [Concomitant]
     Active Substance: VERAPAMIL HYDROCHLORIDE
  12. PRILOSEC [Concomitant]
     Active Substance: OMEPRAZOLE MAGNESIUM

REACTIONS (1)
  - Thyroid cancer [Unknown]
